FAERS Safety Report 4656515-4 (Version None)
Quarter: 2005Q2

REPORT INFORMATION
  Report Type: 
  Country: None (occurrence: None)
  Receive Date: 20050509
  Receipt Date: 20050502
  Transmission Date: 20051028
  Serious: Yes (Death)
  Sender: FDA-Public Use
  Company Number: PHBS2005NZ06293

PATIENT
  Sex: Female

DRUGS (1)
  1. RITALIN [Suspect]
     Route: 065

REACTIONS (1)
  - DRUG DEPENDENCE [None]
